FAERS Safety Report 10186287 (Version 1)
Quarter: 2014Q2

REPORT INFORMATION
  Report Type: Spontaneous
  Country: NL (occurrence: NL)
  Receive Date: 20140521
  Receipt Date: 20140521
  Transmission Date: 20141212
  Serious: Yes (Hospitalization)
  Sender: FDA-Public Use
  Company Number: PHHY2014NL060682

PATIENT
  Age: 68 Year
  Sex: Male
  Weight: 85 kg

DRUGS (9)
  1. DICLOFENAC [Suspect]
     Indication: NEURALGIA
     Dosage: 75 MG, AS NECESSARY
     Dates: start: 200909, end: 20130714
  2. METOPROLOL [Concomitant]
     Dosage: 25 MG, BID
     Dates: start: 200602
  3. PERINDOPRIL [Concomitant]
     Dosage: 2.5 MG, BID
     Dates: start: 200602, end: 20130715
  4. PRAVASTATIN [Concomitant]
     Dosage: 40 MG, QD
     Dates: start: 200602
  5. ASCORBIC ACID [Concomitant]
     Dosage: 100 MG, QD
     Dates: start: 200602
  6. CLONAZEPAM [Concomitant]
     Dosage: 0.5 MG, QD
     Dates: start: 199708
  7. PANTOPRAZOL [Concomitant]
     Dosage: 20 MG, QD
     Dates: start: 200602
  8. LEVOCETIRIZIN [Concomitant]
     Dosage: 5 MG, ONCE EVERY 2 DAYS
     Dates: start: 1994
  9. PERSANTIN [Concomitant]
     Dosage: 200 MG, QD
     Dates: start: 20120702

REACTIONS (3)
  - Feeling cold [Recovering/Resolving]
  - Night sweats [Recovering/Resolving]
  - Fatigue [Recovering/Resolving]
